FAERS Safety Report 19736946 (Version 1)
Quarter: 2021Q3

REPORT INFORMATION
  Report Type: Spontaneous
  Country: ZA (occurrence: ZA)
  Receive Date: 20210823
  Receipt Date: 20210823
  Transmission Date: 20211014
  Serious: Yes (Hospitalization, Other)
  Sender: FDA-Public Use
  Company Number: NVSC2021ZA185953

PATIENT
  Sex: Female

DRUGS (1)
  1. ACLASTA [Suspect]
     Active Substance: ZOLEDRONIC ACID
     Indication: OSTEOPOROSIS
     Dosage: Q12MO (5MG/100ML ANNUALLY)
     Route: 042
     Dates: start: 20191030

REACTIONS (2)
  - Skin ulcer [Not Recovered/Not Resolved]
  - Myocardial infarction [Not Recovered/Not Resolved]
